FAERS Safety Report 18142673 (Version 4)
Quarter: 2020Q4

REPORT INFORMATION
  Report Type: Report from Study
  Country: None (occurrence: JP)
  Receive Date: 20200812
  Receipt Date: 20201222
  Transmission Date: 20210113
  Serious: Yes (Death, Life-Threatening, Hospitalization, Disabling)
  Sender: FDA-Public Use
  Company Number: JP-ABBVIE-20K-087-3520274-00

PATIENT
  Age: 71 Year
  Sex: Female
  Weight: 65.4 kg

DRUGS (3)
  1. FEBUXOSTAT. [Concomitant]
     Active Substance: FEBUXOSTAT
     Indication: PROPHYLAXIS
     Route: 048
     Dates: start: 20200730, end: 20200806
  2. VENCLEXTA [Suspect]
     Active Substance: VENETOCLAX
     Indication: CHRONIC LYMPHOCYTIC LEUKAEMIA REFRACTORY
     Route: 048
     Dates: start: 20200801, end: 20200805
  3. VENCLEXTA [Suspect]
     Active Substance: VENETOCLAX
     Indication: CHRONIC LYMPHOCYTIC LEUKAEMIA RECURRENT

REACTIONS (6)
  - Pseudomembranous colitis [Recovered/Resolved]
  - Clostridium difficile infection [Unknown]
  - Lung infiltration [Fatal]
  - Pulmonary haemorrhage [Fatal]
  - Platelet count decreased [Fatal]
  - Pyrexia [Not Recovered/Not Resolved]

NARRATIVE: CASE EVENT DATE: 20200802
